FAERS Safety Report 24938166 (Version 2)
Quarter: 2025Q1

REPORT INFORMATION
  Report Type: Spontaneous
  Country: US (occurrence: US)
  Receive Date: 20250206
  Receipt Date: 20250212
  Transmission Date: 20250409
  Serious: Yes (Death, Life-Threatening, Hospitalization, Other)
  Sender: SANDOZ
  Company Number: US-SANDOZ-SDZ2025US004041

PATIENT
  Sex: Male

DRUGS (5)
  1. ZARXIO [Suspect]
     Active Substance: FILGRASTIM-SNDZ
     Indication: White blood cell count decreased
     Route: 065
     Dates: start: 20240731
  2. ZARXIO [Suspect]
     Active Substance: FILGRASTIM-SNDZ
     Route: 065
     Dates: start: 20240731
  3. ZARXIO [Suspect]
     Active Substance: FILGRASTIM-SNDZ
     Route: 065
     Dates: start: 202404
  4. ZARXIO [Suspect]
     Active Substance: FILGRASTIM-SNDZ
     Route: 065
     Dates: start: 202405
  5. ZARXIO [Suspect]
     Active Substance: FILGRASTIM-SNDZ
     Route: 065
     Dates: start: 202403

REACTIONS (8)
  - Guillain-Barre syndrome [Fatal]
  - Pneumonia fungal [Fatal]
  - Infection [Fatal]
  - Platelet count decreased [Fatal]
  - Red blood cell count decreased [Fatal]
  - Eating disorder [Unknown]
  - Product packaging quantity issue [Unknown]
  - Syringe issue [Unknown]
